FAERS Safety Report 9228799 (Version 1)
Quarter: 2013Q2

REPORT INFORMATION
  Report Type: Spontaneous
  Country: GB (occurrence: GB)
  Receive Date: 20130412
  Receipt Date: 20130412
  Transmission Date: 20140414
  Serious: Yes (Death)
  Sender: FDA-Public Use
  Company Number: GB-ROCHE-1213989

PATIENT
  Age: 24 Year
  Sex: Female

DRUGS (2)
  1. ACTILYSE [Suspect]
     Indication: VENOOCCLUSIVE DISEASE
     Route: 065
     Dates: start: 1990
  2. ENDOXANA [Suspect]
     Indication: PRODUCT USED FOR UNKNOWN INDICATION
     Dosage: HIGH DOSE
     Route: 065
     Dates: start: 1990

REACTIONS (6)
  - Pulmonary haemorrhage [Fatal]
  - Drug ineffective [Fatal]
  - Acute hepatic failure [Fatal]
  - Venoocclusive disease [Fatal]
  - Hepatic encephalopathy [Fatal]
  - Multi-organ failure [Fatal]
